FAERS Safety Report 17723077 (Version 1)
Quarter: 2020Q2

REPORT INFORMATION
  Report Type: Report from Study
  Country: US (occurrence: US)
  Receive Date: 20200429
  Receipt Date: 20200429
  Transmission Date: 20200714
  Serious: Yes (Other)
  Sender: FDA-Public Use
  Company Number: US-ROCHE-2587837

PATIENT
  Sex: Male

DRUGS (1)
  1. ENTRECTINIB [Suspect]
     Active Substance: ENTRECTINIB
     Indication: BRONCHIAL CARCINOMA
     Dosage: TAKE 3 CAPSULE(S) BY MOUTH EVERY DAY
     Route: 048

REACTIONS (7)
  - Pain [Unknown]
  - Bone neoplasm [Unknown]
  - Decreased appetite [Unknown]
  - Oesophageal disorder [Unknown]
  - Chromaturia [Unknown]
  - Dizziness [Unknown]
  - Balance disorder [Unknown]
